FAERS Safety Report 19075511 (Version 1)
Quarter: 2021Q1

REPORT INFORMATION
  Report Type: Report from Study
  Country: ES (occurrence: ES)
  Receive Date: 20210331
  Receipt Date: 20210331
  Transmission Date: 20210420
  Serious: Yes (Hospitalization, Other)
  Sender: FDA-Public Use
  Company Number: ES-JNJFOC-20210343015

PATIENT
  Age: 66 Year
  Sex: Male
  Weight: 179 kg

DRUGS (4)
  1. MIRTAZAPINE. [Concomitant]
     Active Substance: MIRTAZAPINE
     Indication: COGNITIVE DISORDER
     Dates: start: 20101220
  2. SIMPONI [Suspect]
     Active Substance: GOLIMUMAB
     Indication: COLITIS ULCERATIVE
     Route: 058
     Dates: start: 20180530
  3. CLOPIDOGREL [Concomitant]
     Active Substance: CLOPIDOGREL BISULFATE
     Indication: CEREBROVASCULAR ACCIDENT
     Dates: start: 20111019
  4. PENTASA [Concomitant]
     Active Substance: MESALAMINE
     Dates: start: 1996

REACTIONS (2)
  - Pyelonephritis acute [Recovered/Resolved with Sequelae]
  - Escherichia bacteraemia [Recovered/Resolved with Sequelae]

NARRATIVE: CASE EVENT DATE: 20201130
